FAERS Safety Report 25104563 (Version 1)
Quarter: 2025Q1

REPORT INFORMATION
  Report Type: Spontaneous
  Country: US (occurrence: None)
  Receive Date: 20250320
  Receipt Date: 20250320
  Transmission Date: 20250408
  Serious: Yes (Hospitalization, Disabling)
  Sender: FDA-CTU
  Company Number: None

PATIENT
  Age: 68 Year
  Sex: Male
  Weight: 148.5 kg

DRUGS (9)
  1. JARDIANCE [Suspect]
     Active Substance: EMPAGLIFLOZIN
     Indication: Atrial fibrillation
     Route: 048
     Dates: start: 20240328, end: 20250115
  2. DEVICE [Concomitant]
     Active Substance: DEVICE
  3. LOSARTAN [Concomitant]
     Active Substance: LOSARTAN
  4. WARFARIN [Concomitant]
     Active Substance: WARFARIN
  5. ATORVASTATIN [Concomitant]
     Active Substance: ATORVASTATIN
  6. METOPROLOL SUCCINATE [Concomitant]
     Active Substance: METOPROLOL SUCCINATE
  7. TAMSULOSIN [Concomitant]
     Active Substance: TAMSULOSIN
  8. SPIRONOLACTONE [Concomitant]
     Active Substance: SPIRONOLACTONE
  9. ALBUTEROL\IPRATROPIUM [Concomitant]
     Active Substance: ALBUTEROL\IPRATROPIUM

REACTIONS (3)
  - Skin fissures [None]
  - Osteomyelitis [None]
  - Leg amputation [None]

NARRATIVE: CASE EVENT DATE: 20240926
